FAERS Safety Report 9331019 (Version 2)
Quarter: 2013Q2

REPORT INFORMATION
  Report Type: Spontaneous
  Country: BE (occurrence: BE)
  Receive Date: 20130605
  Receipt Date: 20130621
  Transmission Date: 20140414
  Serious: Yes (Hospitalization)
  Sender: FDA-Public Use
  Company Number: BE-B.I. PHARMACEUTICALS,INC./RIDGEFIELD-2013-BL-00276BL

PATIENT
  Age: 88 Year
  Sex: Male
  Weight: 107 kg

DRUGS (6)
  1. PRADAXA [Suspect]
     Indication: ATRIAL FIBRILLATION
     Route: 048
     Dates: start: 20130319, end: 20130522
  2. SELOKEN [Concomitant]
  3. ALDACTONE [Concomitant]
  4. COVERSYL [Concomitant]
  5. BURINEX [Concomitant]
  6. CORUNO [Concomitant]

REACTIONS (4)
  - Haematuria [Recovered/Resolved]
  - Renal failure acute [Not Recovered/Not Resolved]
  - Haemoptysis [Recovered/Resolved]
  - Pulmonary oedema [Recovered/Resolved]
